FAERS Safety Report 5754715-3 (Version None)
Quarter: 2008Q2

REPORT INFORMATION
  Report Type: 
  Country: None (occurrence: None)
  Receive Date: 20080530
  Receipt Date: 20080520
  Transmission Date: 20081010
  Serious: Yes (Other)
  Sender: FDA-Public Use
  Company Number: FR-PFIZER INC-2008044373

PATIENT
  Age: 60 Year
  Sex: Male

DRUGS (1)
  1. ZOXAN LP [Suspect]
     Dosage: DAILY DOSE:4MG-FREQ:EVERY DAY

REACTIONS (3)
  - BLOOD PRESSURE DECREASED [None]
  - PROSTATIC SPECIFIC ANTIGEN INCREASED [None]
  - STREPTOCOCCAL INFECTION [None]
